FAERS Safety Report 6585990-3 (Version None)
Quarter: 2010Q1

REPORT INFORMATION
  Report Type: 
  Country: None (occurrence: None)
  Receive Date: 20100216
  Receipt Date: 20100216
  Transmission Date: 20100710
  Serious: No
  Sender: FDA-Public Use
  Company Number: None

PATIENT
  Age: 72 Year
  Sex: Female
  Weight: 113.3993 kg

DRUGS (1)
  1. MACROBID [Suspect]
     Indication: CYSTITIS
     Dosage: 100 MG 2 PER DAY MOUTH
     Route: 048
     Dates: start: 20100111

REACTIONS (9)
  - CHILLS [None]
  - DYSPNOEA [None]
  - HEADACHE [None]
  - LUNG DISORDER [None]
  - NAUSEA [None]
  - NERVOUS SYSTEM DISORDER [None]
  - PAIN [None]
  - SINUS DISORDER [None]
  - UNEVALUABLE EVENT [None]
